FAERS Safety Report 8423014-3 (Version None)
Quarter: 2012Q2

REPORT INFORMATION
  Report Type: 
  Country: None (occurrence: None)
  Receive Date: 20120608
  Receipt Date: 20120606
  Transmission Date: 20120825
  Serious: Yes (Death, Life-Threatening, Other)
  Sender: FDA-Public Use
  Company Number: JP-GENZYME-THYM-1002878

PATIENT
  Sex: Female
  Weight: 56 kg

DRUGS (42)
  1. REBAMIPIDE [Concomitant]
     Indication: GASTRITIS PROPHYLAXIS
     Dosage: UNK
     Route: 065
     Dates: start: 20110210, end: 20110526
  2. FUROSEMIDE [Concomitant]
     Indication: RENAL IMPAIRMENT
     Dosage: UNK
     Route: 065
     Dates: start: 20110213, end: 20110724
  3. ALLOPURINOL [Concomitant]
     Indication: PROPHYLAXIS
     Dosage: UNK
     Route: 065
     Dates: start: 20110623, end: 20110629
  4. OMEPRAZOLE [Concomitant]
     Indication: GASTRITIS PROPHYLAXIS
     Dosage: UNK
     Route: 065
     Dates: start: 20110626, end: 20110724
  5. DEXMEDETOMIDINE HYDROCHLORIDE [Concomitant]
     Indication: SEDATIVE THERAPY
     Dosage: UNK
     Route: 065
     Dates: start: 20110715, end: 20110720
  6. PLATELETS [Concomitant]
     Indication: APLASTIC ANAEMIA
     Dosage: UNK
     Route: 065
     Dates: start: 20100510, end: 20110723
  7. MESNA [Concomitant]
     Indication: PROPHYLAXIS
     Dosage: UNK
     Route: 065
     Dates: start: 20110213, end: 20110216
  8. ACETAMINOPHEN [Concomitant]
     Indication: PROPHYLAXIS
     Dosage: UNK
     Route: 065
     Dates: start: 20110211, end: 20110627
  9. HYDROCORTISONE SODIUM SUCCINATE [Concomitant]
     Indication: BONE MARROW CONDITIONING REGIMEN
     Dosage: UNK
     Route: 065
     Dates: start: 20110217, end: 20110724
  10. SODIUM BICARBONATE [Concomitant]
     Indication: PROPHYLAXIS
     Dosage: UNK
     Route: 065
     Dates: start: 20110708, end: 20110708
  11. FLUDARA [Suspect]
     Indication: BONE MARROW CONDITIONING REGIMEN
     Dosage: 40 MG, QD
     Route: 065
     Dates: start: 20110213, end: 20110216
  12. MICAFUNGIN SODIUM [Concomitant]
     Indication: ANTIFUNGAL PROPHYLAXIS
     Dosage: UNK
     Route: 065
     Dates: start: 20110211, end: 20110724
  13. CYCLOPHOSPHAMIDE [Concomitant]
     Indication: BONE MARROW CONDITIONING REGIMEN
     Dosage: UNK
     Route: 065
     Dates: start: 20110213, end: 20110216
  14. HYDROXYZINE PAMOATE [Concomitant]
     Indication: PREMEDICATION
  15. DEXCHLORPHENIRAMINE MALEATE [Concomitant]
     Indication: PREMEDICATION
     Dosage: UNK
     Route: 065
     Dates: start: 20110217, end: 20110330
  16. VALACYCLOVIR HYDROCHLORIDE [Concomitant]
     Indication: ANTIVIRAL PROPHYLAXIS
     Dosage: UNK
     Route: 065
     Dates: start: 20110515, end: 20110630
  17. RED BLOOD CELLS, CONCENTRATED [Concomitant]
     Indication: APLASTIC ANAEMIA
     Dosage: UNK
     Route: 065
     Dates: start: 20100401, end: 20110629
  18. LEVOFLOXACIN [Concomitant]
     Indication: ANTIBIOTIC PROPHYLAXIS
     Dosage: UNK
     Route: 065
     Dates: start: 20110205, end: 20110425
  19. ACIPHEX [Concomitant]
     Indication: GASTRITIS PROPHYLAXIS
     Dosage: UNK
     Route: 065
     Dates: start: 20110210, end: 20110526
  20. FLUDARABINE PHOSPHATE [Concomitant]
     Indication: BONE MARROW CONDITIONING REGIMEN
     Dosage: UNK
     Route: 065
     Dates: start: 20110213, end: 20110216
  21. HYDROCORTISONE SODIUM SUCCINATE [Concomitant]
     Indication: PREMEDICATION
  22. MOXIFLOXACIN HYDROCHLORIDE [Concomitant]
     Indication: ANTIBIOTIC PROPHYLAXIS
     Dosage: UNK
     Route: 065
     Dates: start: 20110321, end: 20110331
  23. CARBAZOCHROME SODIUM SULFONATE [Concomitant]
     Indication: PROPHYLAXIS
     Dosage: UNK
     Route: 065
     Dates: start: 20110312, end: 20110519
  24. SULFAMETHOPRIM [Concomitant]
     Indication: INFECTION PROPHYLAXIS
     Dosage: UNK
     Route: 065
     Dates: start: 20110318, end: 20110630
  25. FENTANYL CITRATE [Concomitant]
     Indication: ENDOTRACHEAL INTUBATION
     Dosage: UNK
     Route: 065
     Dates: start: 20110703, end: 20110724
  26. GRANISETRON HYDROCHLORIDE [Concomitant]
     Indication: PROPHYLAXIS OF NAUSEA AND VOMITING
     Dosage: UNK
     Route: 065
     Dates: start: 20110213, end: 20110216
  27. URSODIOL [Concomitant]
     Indication: PROPHYLAXIS
     Dosage: UNK
     Route: 065
     Dates: start: 20110210, end: 20110630
  28. ACYCLOVIR [Concomitant]
     Indication: ANTIVIRAL PROPHYLAXIS
     Dosage: UNK
     Route: 065
     Dates: start: 20110210, end: 20110519
  29. MYCOPHENOLATE MOFETIL [Concomitant]
     Indication: PROPHYLAXIS AGAINST GRAFT VERSUS HOST DISEASE
     Dosage: UNK
     Route: 065
     Dates: start: 20110217, end: 20110320
  30. MAGNESIUM SULFATE [Concomitant]
     Indication: PROPHYLAXIS
     Dosage: UNK
     Route: 065
     Dates: start: 20110221, end: 20110526
  31. LANSOPRAZOLE [Concomitant]
     Indication: GASTRITIS PROPHYLAXIS
     Dosage: UNK
     Route: 065
     Dates: start: 20110520, end: 20110630
  32. RAMOSETRON HYDROCHLORIDE [Concomitant]
     Indication: PROPHYLAXIS OF NAUSEA AND VOMITING
     Dosage: UNK
     Route: 065
     Dates: start: 20110627, end: 20110627
  33. ROCURONIUM BROMIDE [Concomitant]
     Indication: ENDOTRACHEAL INTUBATION
     Dosage: UNK
     Route: 065
     Dates: start: 20110703, end: 20110703
  34. THYMOGLOBULIN [Suspect]
     Indication: BONE MARROW CONDITIONING REGIMEN
     Dosage: 115 MG, QD
     Route: 042
     Dates: start: 20110211, end: 20110212
  35. METHYLPREDNISOLONE SODIUM SUCCINATE [Concomitant]
     Indication: PREMEDICATION
     Dosage: UNK
     Route: 065
     Dates: start: 20110211, end: 20110212
  36. PREDNISOLONE [Concomitant]
     Indication: BONE MARROW CONDITIONING REGIMEN
     Dosage: UNK
     Route: 065
     Dates: start: 20110213, end: 20110630
  37. HYDROXYZINE PAMOATE [Concomitant]
     Indication: BONE MARROW CONDITIONING REGIMEN
     Dosage: UNK
     Route: 065
     Dates: start: 20110218, end: 20110620
  38. POTASSIUM CHLORIDE [Concomitant]
     Indication: PROPHYLAXIS
     Dosage: UNK
     Route: 065
     Dates: start: 20110309, end: 20110602
  39. MAGNESIUM OXIDE [Concomitant]
     Indication: CONSTIPATION PROPHYLAXIS
     Dosage: UNK
     Route: 065
     Dates: start: 20110523, end: 20110630
  40. TACROLIMUS [Concomitant]
     Indication: PROPHYLAXIS AGAINST GRAFT VERSUS HOST DISEASE
     Dosage: UNK
     Route: 065
     Dates: start: 20110217, end: 20110624
  41. PROPOFOL [Concomitant]
     Indication: SEDATIVE THERAPY
     Dosage: UNK
     Route: 065
     Dates: start: 20110703, end: 20110713
  42. MIDAZOLAM [Concomitant]
     Indication: ENDOTRACHEAL INTUBATION
     Dosage: UNK
     Route: 065
     Dates: start: 20110703, end: 20110703

REACTIONS (17)
  - VOMITING [None]
  - GRAFT VERSUS HOST DISEASE IN SKIN [None]
  - POST TRANSPLANT LYMPHOPROLIFERATIVE DISORDER [None]
  - PYREXIA [None]
  - ABDOMINAL DISCOMFORT [None]
  - WHITE BLOOD CELL COUNT DECREASED [None]
  - RENAL FAILURE ACUTE [None]
  - DISSEMINATED INTRAVASCULAR COAGULATION [None]
  - BLOOD GLUCOSE INCREASED [None]
  - PNEUMONIA [None]
  - ORAL HERPES [None]
  - DIARRHOEA [None]
  - PLEURISY [None]
  - STEVENS-JOHNSON SYNDROME [None]
  - EPISTAXIS [None]
  - PRURITUS [None]
  - STAPHYLOCOCCAL SEPSIS [None]
